FAERS Safety Report 6985443-4 (Version None)
Quarter: 2010Q3

REPORT INFORMATION
  Report Type: 
  Country: None (occurrence: None)
  Receive Date: 20100915
  Receipt Date: 20100908
  Transmission Date: 20110219
  Serious: Yes (Hospitalization)
  Sender: FDA-Public Use
  Company Number: A0859654A

PATIENT
  Sex: Female

DRUGS (2)
  1. TYKERB [Suspect]
     Dosage: 1250MG PER DAY
     Route: 048
     Dates: start: 20100511
  2. XELODA [Concomitant]
     Indication: BREAST CANCER
     Route: 065
     Dates: start: 20100420

REACTIONS (6)
  - ARTHRALGIA [None]
  - DIABETIC KETOACIDOSIS [None]
  - DIARRHOEA [None]
  - FATIGUE [None]
  - HYPERLIPIDAEMIA [None]
  - HYPERTRIGLYCERIDAEMIA [None]
